FAERS Safety Report 10509258 (Version 1)
Quarter: 2014Q3

REPORT INFORMATION
  Report Type: Spontaneous
  Country: US (occurrence: None)
  Receive Date: 20140915
  Receipt Date: 20140915
  Transmission Date: 20150326
  Serious: Yes (Hospitalization, Other)
  Sender: FDA-Public Use
  Company Number: 2014-US-003660

PATIENT
  Age: 44 Year
  Sex: Female
  Weight: 83 kg

DRUGS (4)
  1. AMBIEN [Concomitant]
     Active Substance: ZOLPIDEM TARTRATE
  2. DEXEDRINE [Concomitant]
     Active Substance: DEXTROAMPHETAMINE SULFATE
  3. LAMICTAL [Concomitant]
     Active Substance: LAMOTRIGINE
  4. XYREM [Suspect]
     Active Substance: SODIUM OXYBATE
     Indication: NARCOLEPSY
     Route: 048
     Dates: start: 200604

REACTIONS (2)
  - Psychiatric symptom [None]
  - Psychotic disorder [None]

NARRATIVE: CASE EVENT DATE: 2013
